FAERS Safety Report 4787383-8 (Version None)
Quarter: 2005Q3

REPORT INFORMATION
  Report Type: 
  Country: None (occurrence: None)
  Receive Date: 20050926
  Receipt Date: 20050817
  Transmission Date: 20060218
  Serious: No
  Sender: FDA-Public Use
  Company Number: 216841

PATIENT
  Age: 60 Year
  Sex: Female
  Weight: 98 kg

DRUGS (4)
  1. AVASTIN [Suspect]
     Indication: OVARIAN CANCER
     Dosage: 15 MG/KG, Q3W, INTRAVENOUS
     Route: 042
     Dates: start: 20050722
  2. PREDNISONE [Concomitant]
  3. THYROID TAB [Concomitant]
  4. BI-EST (ESTRADIOL, ESTRIOL) [Concomitant]

REACTIONS (2)
  - BURNING SENSATION [None]
  - ERYTHEMA [None]
